FAERS Safety Report 12248347 (Version 1)
Quarter: 2016Q2

REPORT INFORMATION
  Report Type: Spontaneous
  Country: US (occurrence: None)
  Receive Date: 20160407
  Receipt Date: 20160407
  Transmission Date: 20160815
  Serious: Yes (Hospitalization, Disabling)
  Sender: FDA-Public Use
  Company Number: None

PATIENT
  Age: 81 Year
  Sex: Female
  Weight: 68.04 kg

DRUGS (6)
  1. BENTRA [Concomitant]
  2. NORVASC [Suspect]
     Active Substance: AMLODIPINE BESYLATE
  3. CELEBREX [Concomitant]
     Active Substance: CELECOXIB
  4. CIPROFLOXACIN. [Suspect]
     Active Substance: CIPROFLOXACIN
     Indication: GASTROINTESTINAL INFECTION
     Route: 048
  5. CAPTOPRIL. [Concomitant]
     Active Substance: CAPTOPRIL
  6. CLONIDINE PATCH [Suspect]
     Active Substance: CLONIDINE

REACTIONS (12)
  - Palpitations [None]
  - Back pain [None]
  - Tremor [None]
  - Disturbance in attention [None]
  - Amnesia [None]
  - Pain [None]
  - Swelling [None]
  - Erythema [None]
  - Rash [None]
  - Dizziness [None]
  - Fall [None]
  - Balance disorder [None]

NARRATIVE: CASE EVENT DATE: 20151015
